FAERS Safety Report 6202846-6 (Version None)
Quarter: 2009Q2

REPORT INFORMATION
  Report Type: 
  Country: None (occurrence: None)
  Receive Date: 20090526
  Receipt Date: 20090526
  Transmission Date: 20091009
  Serious: Yes (Hospitalization)
  Sender: FDA-Public Use
  Company Number: BE-ABBOTT-08P-013-0492123-00

PATIENT
  Sex: Male

DRUGS (4)
  1. HUMIRA [Suspect]
     Indication: ANKYLOSING SPONDYLITIS
     Route: 058
     Dates: start: 20080910, end: 20081203
  2. PIROXICAM [Concomitant]
     Indication: DRUG USE FOR UNKNOWN INDICATION
  3. SOLU-MEDROL [Concomitant]
     Indication: DRUG USE FOR UNKNOWN INDICATION
     Route: 042
  4. OMEPRAZOLE [Concomitant]
     Indication: DRUG USE FOR UNKNOWN INDICATION

REACTIONS (13)
  - ALBUMIN GLOBULIN RATIO INCREASED [None]
  - ALTERED VISUAL DEPTH PERCEPTION [None]
  - ARTHRALGIA [None]
  - CENTRAL NERVOUS SYSTEM LESION [None]
  - CRANIAL NERVE INFECTION [None]
  - DEMYELINATION [None]
  - FATIGUE [None]
  - HYPERVENTILATION [None]
  - HYPOACUSIS [None]
  - MOOD ALTERED [None]
  - OPTIC NEURITIS [None]
  - VERTIGO [None]
  - VISUAL ACUITY REDUCED [None]
